FAERS Safety Report 12774811 (Version 1)
Quarter: 2016Q3

REPORT INFORMATION
  Report Type: Spontaneous
  Country: US (occurrence: US)
  Receive Date: 20160923
  Receipt Date: 20160923
  Transmission Date: 20161109
  Serious: Yes (Hospitalization)
  Sender: FDA-Public Use
  Company Number: US-ALLERGAN-1669486US

PATIENT
  Age: 53 Year
  Sex: Female

DRUGS (1)
  1. VIBERZI [Suspect]
     Active Substance: ELUXADOLINE
     Indication: DIARRHOEA
     Dosage: 75 MG, UNK
     Route: 048
     Dates: start: 20160914, end: 20160914

REACTIONS (13)
  - Vomiting [Unknown]
  - Gastrooesophageal reflux disease [Unknown]
  - Hyperhidrosis [Unknown]
  - Presyncope [Unknown]
  - Nausea [Unknown]
  - Abdominal pain upper [Unknown]
  - Weight decreased [Unknown]
  - Chest pain [Unknown]
  - Hepatic enzyme increased [Unknown]
  - Chest discomfort [Recovered/Resolved]
  - Dyspnoea [Recovered/Resolved]
  - Hypersensitivity [Unknown]
  - Off label use [Unknown]

NARRATIVE: CASE EVENT DATE: 20160914
